FAERS Safety Report 9324479 (Version 1)
Quarter: 2013Q2

REPORT INFORMATION
  Report Type: Spontaneous
  Country: IT (occurrence: IT)
  Receive Date: 20130603
  Receipt Date: 20130603
  Transmission Date: 20140414
  Serious: Yes (Hospitalization)
  Sender: FDA-Public Use
  Company Number: IT-TEVA-408452ISR

PATIENT
  Sex: Female

DRUGS (3)
  1. PAROXETINE [Suspect]
     Indication: PANIC ATTACK
     Dosage: 20 MILLIGRAM DAILY;
     Route: 065
     Dates: start: 2003
  2. PAROXETINE [Suspect]
     Indication: ANXIETY
     Dosage: 20 MILLIGRAM DAILY;
     Route: 065
  3. PAROXETINE [Suspect]
     Dosage: 40 MILLIGRAM DAILY;
     Route: 065
     Dates: start: 200710, end: 200809

REACTIONS (3)
  - Hypomania [Recovered/Resolved]
  - Mania [Recovered/Resolved]
  - Disinhibition [Recovered/Resolved]
